FAERS Safety Report 22658146 (Version 1)
Quarter: 2023Q2

REPORT INFORMATION
  Report Type: Report from Study
  Country: BR (occurrence: BR)
  Receive Date: 20230630
  Receipt Date: 20230630
  Transmission Date: 20230722
  Serious: Yes (Other)
  Sender: FDA-Public Use
  Company Number: BR-002147023-NVSC2023BR030152

PATIENT
  Age: 47 Year
  Sex: Female

DRUGS (2)
  1. KISQALI [Suspect]
     Active Substance: RIBOCICLIB
     Indication: Breast cancer
     Dosage: UNK
     Route: 065
     Dates: end: 20230306
  2. KISQALI [Suspect]
     Active Substance: RIBOCICLIB
     Dosage: 3 DOSAGE FORM, QD (MANUFACTURING DATE: SEP 2022)
     Route: 065
     Dates: start: 202211

REACTIONS (7)
  - Haematemesis [Not Recovered/Not Resolved]
  - Malaise [Unknown]
  - Rash macular [Not Recovered/Not Resolved]
  - Pruritus [Unknown]
  - Vomiting [Recovered/Resolved]
  - Wheezing [Not Recovered/Not Resolved]
  - Cough [Not Recovered/Not Resolved]

NARRATIVE: CASE EVENT DATE: 20230308
